FAERS Safety Report 17787125 (Version 1)
Quarter: 2020Q2

REPORT INFORMATION
  Report Type: Spontaneous
  Country: IT (occurrence: IT)
  Receive Date: 20200514
  Receipt Date: 20200514
  Transmission Date: 20200714
  Serious: Yes (Other)
  Sender: FDA-Public Use
  Company Number: IT-TEVA-2020-IT-1234615

PATIENT
  Age: 58 Year
  Sex: Male

DRUGS (4)
  1. MYCOSTATIN [Concomitant]
     Active Substance: NYSTATIN
  2. PROGRAF [Suspect]
     Active Substance: TACROLIMUS
     Indication: PROPHYLAXIS
     Dosage: 8 DF
     Route: 048
     Dates: start: 20190930, end: 20200108
  3. ACICLOVIR [Concomitant]
     Active Substance: ACYCLOVIR
  4. MYFENAX [Suspect]
     Active Substance: MYCOPHENOLATE MOFETIL
     Indication: PROPHYLAXIS
     Dosage: 2 DF
     Route: 048
     Dates: start: 20190930, end: 20200108

REACTIONS (1)
  - Lymphopenia [Unknown]

NARRATIVE: CASE EVENT DATE: 20200108
